FAERS Safety Report 18596940 (Version 2)
Quarter: 2020Q4

REPORT INFORMATION
  Report Type: Spontaneous
  Country: US (occurrence: US)
  Receive Date: 20201209
  Receipt Date: 20201222
  Transmission Date: 20210114
  Serious: No
  Sender: FDA-Public Use
  Company Number: US-PFIZER INC-2020482578

PATIENT
  Age: 74 Year
  Sex: Male
  Weight: 63.5 kg

DRUGS (2)
  1. IBRANCE [Suspect]
     Active Substance: PALBOCICLIB
     Dosage: UNK
  2. IBRANCE [Suspect]
     Active Substance: PALBOCICLIB
     Indication: LIPOSARCOMA
     Dosage: 125 MG, CYCLIC [125MG,ONE A DAY FOR 21 DAYS]
     Dates: start: 2020

REACTIONS (5)
  - Alopecia [Not Recovered/Not Resolved]
  - Neutrophil count decreased [Unknown]
  - Faeces discoloured [Recovered/Resolved]
  - White blood cell count decreased [Unknown]
  - Off label use [Unknown]
